FAERS Safety Report 5534472-6 (Version None)
Quarter: 2007Q4

REPORT INFORMATION
  Report Type: 
  Country: None (occurrence: None)
  Receive Date: 20071119
  Receipt Date: 20070723
  Transmission Date: 20080405
  Serious: No
  Sender: FDA-Public Use
  Company Number: TPA2007A01559

PATIENT
  Age: 35 Year
  Sex: Female

DRUGS (4)
  1. ROZEREM [Suspect]
     Dosage: 8 MG, QHS, PER ORAL
     Route: 048
  2. LITHIUM CARBONATE [Concomitant]
  3. LAMICTAL [Concomitant]
  4. SYNTHROID [Concomitant]

REACTIONS (2)
  - ANORGASMIA [None]
  - LIBIDO DECREASED [None]
